FAERS Safety Report 8575877-9 (Version None)
Quarter: 2012Q2

REPORT INFORMATION
  Report Type: 
  Country: None (occurrence: None)
  Receive Date: 20120423
  Receipt Date: 20100323
  Transmission Date: 20120825
  Serious: Yes (Disabling)
  Sender: FDA-Public Use
  Company Number: PHEH2010US01569

PATIENT
  Age: 88 Year
  Sex: Male

DRUGS (4)
  1. RAMIPRIL [Concomitant]
  2. METFFORMIN HYDROCHLORIDE [Concomitant]
  3. EXJADE [Suspect]
     Indication: MYELOFIBROSIS
     Dosage: 1375 MG, QD, ORAL
     Route: 048
     Dates: start: 20091229, end: 20100129
  4. EXJADE [Suspect]
     Indication: IRON OVERLOAD
     Dosage: 1375 MG, QD, ORAL
     Route: 048
     Dates: start: 20091229, end: 20100129

REACTIONS (2)
  - DIARRHOEA [None]
  - GASTROINTESTINAL HAEMORRHAGE [None]
